FAERS Safety Report 23802996 (Version 1)
Quarter: 2024Q2

REPORT INFORMATION
  Report Type: Spontaneous
  Country: RU (occurrence: RU)
  Receive Date: 20240501
  Receipt Date: 20240501
  Transmission Date: 20240716
  Serious: Yes (Other)
  Sender: FDA-Public Use
  Company Number: RU-AMERICAN REGENT INC-2024001589

PATIENT
  Age: 21 Year
  Sex: Female
  Weight: 79.9 kg

DRUGS (1)
  1. FERINJECT [Suspect]
     Active Substance: FERRIC CARBOXYMALTOSE
     Indication: Anaemia of pregnancy
     Dosage: UNSPECIFIED DOSE DILUTED IN 10 ML OF 0.9 % NACL, SCHEDULED TO BE ADMINISTERED 100 MG (1 IN 1 TOTAL)
     Dates: start: 20240329, end: 20240329

REACTIONS (3)
  - Vision blurred [Recovering/Resolving]
  - Asthenia [Recovering/Resolving]
  - Maternal exposure during pregnancy [Unknown]

NARRATIVE: CASE EVENT DATE: 20240329
